FAERS Safety Report 4790548-2 (Version None)
Quarter: 2005Q4

REPORT INFORMATION
  Report Type: 
  Country: None (occurrence: None)
  Receive Date: 20051005
  Receipt Date: 20050912
  Transmission Date: 20060501
  Serious: Yes (Other)
  Sender: FDA-Public Use
  Company Number: 2005064605

PATIENT
  Sex: Male

DRUGS (3)
  1. BEXTRA [Suspect]
     Indication: ARTHRITIS
     Dosage: 20 MG (10 MG, 2 IN 1 D), ORAL
     Route: 048
  2. BEXTRA [Suspect]
     Indication: PAIN
     Dosage: 20 MG (10 MG, 2 IN 1 D), ORAL
     Route: 048
  3. VICODIN [Concomitant]

REACTIONS (15)
  - BLISTER [None]
  - CHAPPED LIPS [None]
  - CHEST DISCOMFORT [None]
  - CHEST PAIN [None]
  - DIARRHOEA [None]
  - DRY SKIN [None]
  - HAEMORRHAGE [None]
  - HYPERHIDROSIS [None]
  - HYPERTENSION [None]
  - OEDEMA PERIPHERAL [None]
  - PALPITATIONS [None]
  - PRURITUS [None]
  - RASH [None]
  - SKIN EXFOLIATION [None]
  - SKIN LESION [None]
